FAERS Safety Report 8471636-6 (Version None)
Quarter: 2012Q2

REPORT INFORMATION
  Report Type: 
  Country: None (occurrence: None)
  Receive Date: 20120627
  Receipt Date: 20120618
  Transmission Date: 20120825
  Serious: Yes (Hospitalization)
  Sender: FDA-Public Use
  Company Number: US-ASTRAZENECA-2010SE51552

PATIENT
  Age: 58 Year
  Sex: Female

DRUGS (3)
  1. DEXILANT [Suspect]
     Route: 065
  2. NEXIUM [Suspect]
     Route: 048
     Dates: start: 20090101
  3. PRILOSEC OTC [Suspect]
     Route: 048

REACTIONS (8)
  - DRUG NAME CONFUSION [None]
  - GASTRIC DISORDER [None]
  - HEADACHE [None]
  - GASTROOESOPHAGEAL REFLUX DISEASE [None]
  - GASTRITIS [None]
  - DRUG EFFECT DELAYED [None]
  - DRUG INEFFECTIVE [None]
  - DRUG HYPERSENSITIVITY [None]
